FAERS Safety Report 7794762-3 (Version None)
Quarter: 2011Q4

REPORT INFORMATION
  Report Type: 
  Country: None (occurrence: None)
  Receive Date: 20111004
  Receipt Date: 20110927
  Transmission Date: 20120403
  Serious: No
  Sender: FDA-Public Use
  Company Number: US-PFIZER INC-2011230740

PATIENT
  Sex: Female
  Weight: 65.76 kg

DRUGS (5)
  1. PRISTIQ [Suspect]
     Indication: DEPRESSION
     Dosage: 50 MG, 1X/DAY
     Route: 048
     Dates: start: 20110912
  2. CYMBALTA [Suspect]
     Dosage: UNKNOWN
  3. ZOLOFT [Suspect]
     Indication: DEPRESSION
     Dosage: 200 MG, 1X/DAY
     Route: 048
     Dates: end: 20110801
  4. WELLBUTRIN [Suspect]
     Indication: DEPRESSION
     Dosage: UNK
     Route: 048
     Dates: end: 20110801
  5. FENTANYL [Concomitant]
     Indication: PAIN
     Dosage: 100 UG, (BEING CHANGED EVERY 72 HOURS) AS NEEDED
     Route: 062
     Dates: start: 20090101

REACTIONS (4)
  - COLD SWEAT [None]
  - HYPERHIDROSIS [None]
  - SPEECH DISORDER [None]
  - DRUG INEFFECTIVE [None]
